FAERS Safety Report 6026572-1 (Version None)
Quarter: 2008Q4

REPORT INFORMATION
  Report Type: 
  Country: None (occurrence: None)
  Receive Date: 20081231
  Receipt Date: 20081217
  Transmission Date: 20090506
  Serious: Yes (Hospitalization)
  Sender: FDA-Public Use
  Company Number: KV200801245

PATIENT
  Age: 83 Year
  Sex: Male
  Weight: 99.8 kg

DRUGS (6)
  1. ISOSORBIDE MONONITRATE [Suspect]
     Indication: MYOCARDIAL INFARCTION
     Dosage: 60 MG, QD, ORAL
     Route: 048
     Dates: start: 19970101
  2. COUMADIN [Concomitant]
  3. ZOCOR [Concomitant]
  4. TOPROL-XL [Concomitant]
  5. ZESTRIL [Concomitant]
  6. PRINIVIL [Concomitant]

REACTIONS (2)
  - HYPOTENSION [None]
  - PRODUCT QUALITY ISSUE [None]
